FAERS Safety Report 7988002-X (Version None)
Quarter: 2011Q4

REPORT INFORMATION
  Report Type: 
  Country: None (occurrence: None)
  Receive Date: 20111216
  Receipt Date: 20101122
  Transmission Date: 20120403
  Serious: No
  Sender: FDA-Public Use
  Company Number: US-BRISTOL-MYERS SQUIBB COMPANY-15400203

PATIENT
  Sex: Male

DRUGS (4)
  1. OLANZAPINE [Suspect]
     Dosage: TAKING FROM 2-3 YEARS
     Route: 048
  2. ABILIFY [Suspect]
     Indication: ALTERED STATE OF CONSCIOUSNESS
     Dosage: TAKING FROM 7 YEARS AGO
  3. RISPERIDONE [Suspect]
  4. SEROQUEL [Suspect]

REACTIONS (5)
  - ABNORMAL DREAMS [None]
  - TINNITUS [None]
  - DEPERSONALISATION [None]
  - AMNESIA [None]
  - ALTERED STATE OF CONSCIOUSNESS [None]
